FAERS Safety Report 24386329 (Version 6)
Quarter: 2025Q1

REPORT INFORMATION
  Report Type: Report from Study
  Country: IT (occurrence: IT)
  Receive Date: 20241001
  Receipt Date: 20250227
  Transmission Date: 20250409
  Serious: Yes (Hospitalization, Other)
  Sender: TAKEDA
  Company Number: IT-TAKEDA-2024TUS096826

PATIENT
  Sex: Male

DRUGS (3)
  1. RURIOCTOCOG ALFA PEGOL [Suspect]
     Active Substance: RURIOCTOCOG ALFA PEGOL
     Indication: Haemophilia
     Dosage: 3000 INTERNATIONAL UNIT, Q72H
  2. RURIOCTOCOG ALFA PEGOL [Suspect]
     Active Substance: RURIOCTOCOG ALFA PEGOL
  3. RURIOCTOCOG ALFA PEGOL [Suspect]
     Active Substance: RURIOCTOCOG ALFA PEGOL

REACTIONS (2)
  - Myocardial infarction [Recovered/Resolved]
  - Chest pain [Not Recovered/Not Resolved]

NARRATIVE: CASE EVENT DATE: 20230701
